FAERS Safety Report 7076598-4 (Version None)
Quarter: 2010Q4

REPORT INFORMATION
  Report Type: 
  Country: None (occurrence: None)
  Receive Date: 20101101
  Receipt Date: 20101025
  Transmission Date: 20110411
  Serious: Yes (Hospitalization)
  Sender: FDA-Public Use
  Company Number: FR-PFIZER INC-2010135037

PATIENT
  Age: 67 Year
  Sex: Male

DRUGS (11)
  1. CELEBREX [Suspect]
     Indication: CRYSTAL ARTHROPATHY
     Dosage: UNK
     Route: 048
     Dates: start: 20100619, end: 20100622
  2. COLCHIMAX [Suspect]
     Indication: CRYSTAL ARTHROPATHY
     Dosage: UNK
     Route: 048
     Dates: start: 20100619, end: 20100622
  3. LASIX [Suspect]
     Dosage: 500 MG, UNK
     Route: 048
  4. LASIX [Suspect]
     Dosage: 250 MG, 1X/DAY
  5. REVATIO [Concomitant]
     Dosage: UNK
  6. DIFFU K [Concomitant]
     Dosage: UNK
  7. ESIDRIX [Concomitant]
     Dosage: UNK
  8. ALDACTONE [Concomitant]
     Dosage: UNK
  9. TRACLEER [Concomitant]
     Dosage: UNK
  10. FLOLAN [Concomitant]
     Dosage: UNK
  11. OXYGEN [Concomitant]
     Dosage: UNK

REACTIONS (5)
  - ANAEMIA [None]
  - DIARRHOEA [None]
  - HYPOKALAEMIA [None]
  - RENAL FAILURE CHRONIC [None]
  - VOMITING [None]
